FAERS Safety Report 5103137-7 (Version None)
Quarter: 2006Q3

REPORT INFORMATION
  Report Type: 
  Country: None (occurrence: None)
  Receive Date: 20060908
  Receipt Date: 20060828
  Transmission Date: 20061208
  Serious: Yes (Hospitalization, Other)
  Sender: FDA-Public Use
  Company Number: 2006076808

PATIENT
  Age: 76 Year
  Sex: Male
  Weight: 53 kg

DRUGS (10)
  1. UNASYN [Suspect]
     Indication: PYELONEPHRITIS
     Dosage: 6 GRAM 4 IN 1 D), INTRAVENOUS
     Route: 042
     Dates: start: 20060604, end: 20060608
  2. ARTIST (CARVEDILOL) (CARVEDILOL) [Concomitant]
  3. BLOPRESS (CANDESARTAN CILEXETIL CANDESARTAN CILEXETIL) [Concomitant]
  4. DIART (AZOSEMIDE (AZOSEMIDE) [Concomitant]
  5. ALDACTONE [Concomitant]
  6. AMIODARONE HCL [Concomitant]
  7. RABEPRAZOLE SODIUM [Concomitant]
  8. WARFARIN SODIUM [Concomitant]
  9. RUEFRIEN (SODIUM AZULENE SULFONATE) (AZULENE, LEVOGLUTAMIDE) [Concomitant]
  10. MUCODYNE (L-CARBOCISTEINE) (CARBOCISTEINE) [Concomitant]

REACTIONS (1)
  - PANCYTOPENIA [None]
